FAERS Safety Report 6938403-3 (Version None)
Quarter: 2010Q3

REPORT INFORMATION
  Report Type: 
  Country: None (occurrence: None)
  Receive Date: 20100824
  Receipt Date: 20100812
  Transmission Date: 20110219
  Serious: Yes (Hospitalization, Other)
  Sender: FDA-Public Use
  Company Number: US-PFIZER INC-2010073506

PATIENT
  Sex: Male

DRUGS (1)
  1. CHANTIX [Suspect]
     Indication: SMOKING CESSATION THERAPY
     Dosage: 0.5MG AND 1MG
     Dates: start: 20090101, end: 20090301

REACTIONS (10)
  - AGGRESSION [None]
  - ANXIETY [None]
  - DISTURBANCE IN ATTENTION [None]
  - HALLUCINATION [None]
  - INSOMNIA [None]
  - MAJOR DEPRESSION [None]
  - MENTAL DISORDER [None]
  - MENTAL IMPAIRMENT [None]
  - PARANOIA [None]
  - SUICIDE ATTEMPT [None]
